FAERS Safety Report 11504046 (Version 2)
Quarter: 2015Q3

REPORT INFORMATION
  Report Type: Spontaneous
  Country: DE (occurrence: DE)
  Receive Date: 20150914
  Receipt Date: 20150915
  Transmission Date: 20151125
  Serious: Yes (Other)
  Sender: FDA-Public Use
  Company Number: DE-GILEAD-2015-0170749

PATIENT
  Age: 33 Year
  Sex: Female

DRUGS (5)
  1. VISTIDE [Suspect]
     Active Substance: CIDOFOVIR
     Indication: CYTOMEGALOVIRUS CHORIORETINITIS
     Dosage: UNK
     Route: 065
  2. SAQUINAVIR [Concomitant]
     Active Substance: SAQUINAVIR
     Indication: ACQUIRED IMMUNODEFICIENCY SYNDROME
     Route: 065
  3. RITONAVIR. [Concomitant]
     Active Substance: RITONAVIR
     Indication: ACQUIRED IMMUNODEFICIENCY SYNDROME
     Route: 065
  4. STAVUDINE. [Concomitant]
     Active Substance: STAVUDINE
     Indication: ACQUIRED IMMUNODEFICIENCY SYNDROME
     Route: 065
  5. LAMIVUDINE. [Concomitant]
     Active Substance: LAMIVUDINE
     Indication: ACQUIRED IMMUNODEFICIENCY SYNDROME
     Route: 065

REACTIONS (1)
  - Drug ineffective [Unknown]
